FAERS Safety Report 11629496 (Version 1)
Quarter: 2015Q4

REPORT INFORMATION
  Report Type: Spontaneous
  Country: US (occurrence: None)
  Receive Date: 20151013
  Receipt Date: 20151013
  Transmission Date: 20160304
  Serious: No
  Sender: FDA-Public Use
  Company Number: None

PATIENT
  Age: 15 Year
  Sex: Female

DRUGS (7)
  1. KALYDECO [Suspect]
     Active Substance: IVACAFTOR
     Indication: CYSTIC FIBROSIS
     Route: 048
     Dates: start: 20140217
  2. VIT VIT E [Concomitant]
  3. TOBI PODHALER [Suspect]
     Active Substance: TOBRAMYCIN
     Dosage: 112 MG, INL
     Dates: start: 20131113
  4. SOD CHL [Concomitant]
  5. AZITHRO [Concomitant]
  6. PULMOZYME [Concomitant]
     Active Substance: DORNASE ALFA
  7. ZENPEP [Concomitant]
     Active Substance: PANCRELIPASE\PANCRELIPASE AMYLASE\PANCRELIPASE LIPASE\PANCRELIPASE PROTEASE

REACTIONS (1)
  - Cystic fibrosis [None]

NARRATIVE: CASE EVENT DATE: 20151001
